FAERS Safety Report 23487883 (Version 2)
Quarter: 2024Q3

REPORT INFORMATION
  Report Type: Spontaneous
  Country: JP (occurrence: JP)
  Receive Date: 20240206
  Receipt Date: 20240705
  Transmission Date: 20241016
  Serious: Yes (Death, Other)
  Sender: MERCK
  Company Number: JP-MSD-M2023-42951

PATIENT
  Age: 84 Year
  Sex: Female

DRUGS (2)
  1. KEYTRUDA [Suspect]
     Active Substance: PEMBROLIZUMAB
     Indication: Uterine cancer
     Dosage: 200 MILLIGRAM, Q3W
     Route: 041
     Dates: start: 202301, end: 20230829
  2. LENVATINIB MESYLATE [Suspect]
     Active Substance: LENVATINIB MESYLATE
     Indication: Uterine cancer
     Dosage: UNK
     Route: 065
     Dates: start: 202301, end: 2023

REACTIONS (3)
  - Malignant neoplasm progression [Fatal]
  - Adverse reaction [Unknown]
  - Beta 2 microglobulin increased [Recovering/Resolving]

NARRATIVE: CASE EVENT DATE: 20230101
